FAERS Safety Report 16677465 (Version 2)
Quarter: 2019Q3

REPORT INFORMATION
  Report Type: Spontaneous
  Country: ES (occurrence: ES)
  Receive Date: 20190807
  Receipt Date: 20190910
  Transmission Date: 20191004
  Serious: Yes (Other)
  Sender: FDA-Public Use
  Company Number: ES-PFIZER INC-2019332007

PATIENT
  Age: 62 Year
  Sex: Female

DRUGS (3)
  1. LEFLUNOMIDE. [Concomitant]
     Active Substance: LEFLUNOMIDE
     Dosage: 10 MG, DAILY (INCREASES DEMAND IN PERIODS OF GREATER INFLAMMATION )
  2. PREDNISONE. [Concomitant]
     Active Substance: PREDNISONE
     Dosage: 10 MG, DAILY (INCREASES DEMAND IN PERIODS OF GREATER INFLAMMATION )
  3. XELJANZ [Suspect]
     Active Substance: TOFACITINIB CITRATE
     Indication: RHEUMATOID ARTHRITIS
     Dosage: 5 MG, 2X/DAY (5MG / 12 H) (INTERMITTENTLY DURING THE FOLLOWING 2-3 )
     Dates: start: 20190611, end: 20190714

REACTIONS (4)
  - Diarrhoea haemorrhagic [Recovered/Resolved]
  - Oral herpes [Unknown]
  - Urinary tract infection [Recovered/Resolved]
  - Diverticulitis [Recovered/Resolved]

NARRATIVE: CASE EVENT DATE: 2019
